FAERS Safety Report 15890321 (Version 1)
Quarter: 2019Q1

REPORT INFORMATION
  Report Type: Report from Study
  Country: None (occurrence: CO)
  Receive Date: 20190130
  Receipt Date: 20190130
  Transmission Date: 20190417
  Serious: Yes (Other)
  Sender: FDA-Public Use
  Company Number: CO-ABBVIE-19K-036-2643138-00

PATIENT
  Sex: Female
  Weight: 82 kg

DRUGS (3)
  1. METHOTREXATO [Concomitant]
     Active Substance: METHOTREXATE
     Indication: PRODUCT USED FOR UNKNOWN INDICATION
  2. HUMIRA [Suspect]
     Active Substance: ADALIMUMAB
     Indication: RHEUMATOID ARTHRITIS
     Route: 058
     Dates: start: 20180727
  3. HUMIRA [Suspect]
     Active Substance: ADALIMUMAB
     Dosage: HUMIRA AC
     Route: 058

REACTIONS (2)
  - Asphyxia [Recovering/Resolving]
  - Dry throat [Recovering/Resolving]

NARRATIVE: CASE EVENT DATE: 2018
